FAERS Safety Report 14581837 (Version 1)
Quarter: 2018Q1

REPORT INFORMATION
  Report Type: Spontaneous
  Country: PT (occurrence: PT)
  Receive Date: 20180228
  Receipt Date: 20180228
  Transmission Date: 20180509
  Serious: Yes (Other)
  Sender: FDA-Public Use
  Company Number: PT-AUROBINDO-AUR-APL-2018-009949

PATIENT
  Age: 17 Year
  Sex: Male
  Weight: 63 kg

DRUGS (5)
  1. VALPROIC ACID. [Concomitant]
     Active Substance: VALPROIC ACID
     Indication: BIPOLAR DISORDER
     Dosage: 1000 MG/DIA ()
     Route: 048
     Dates: start: 20171103, end: 20171221
  2. OLANZAPINE AUROVITAS ORALDISPERSIBLE TABLET [Suspect]
     Active Substance: OLANZAPINE
     Indication: BIPOLAR DISORDER
     Dosage: TITULADO AT? 15 MG ()
     Route: 048
     Dates: start: 20171121
  3. CHLORPROMAZINE. [Concomitant]
     Active Substance: CHLORPROMAZINE
     Indication: BIPOLAR DISORDER
     Dosage: ()
     Route: 048
     Dates: end: 20171221
  4. LITHIUM. [Concomitant]
     Active Substance: LITHIUM
     Indication: BIPOLAR DISORDER
     Dosage: 1000 MG/DIA
     Route: 048
     Dates: start: 20171116, end: 20171221
  5. OLANZAPINE AUROVITAS ORALDISPERSIBLE TABLET [Suspect]
     Active Substance: OLANZAPINE
     Dosage: TITULADO AT? 15 MG ()
     Route: 048
     Dates: start: 20171121

REACTIONS (2)
  - Drug ineffective [Recovered/Resolved]
  - Product substitution issue [Unknown]

NARRATIVE: CASE EVENT DATE: 20171121
